FAERS Safety Report 24372454 (Version 1)
Quarter: 2024Q3

REPORT INFORMATION
  Report Type: Report from Study
  Country: US (occurrence: US)
  Receive Date: 20240927
  Receipt Date: 20240927
  Transmission Date: 20241017
  Serious: Yes (Other)
  Sender: UCB
  Company Number: US-UCBSA-2024035540

PATIENT
  Sex: Female
  Weight: 143.2 kg

DRUGS (2)
  1. ROZANOLIXIZUMAB [Suspect]
     Active Substance: ROZANOLIXIZUMAB
     Indication: Myasthenia gravis
     Dosage: 560MG (4ML), ONCE WEEKLY FOR SIX WEEKS
     Route: 058
     Dates: start: 20240627
  2. ROZANOLIXIZUMAB [Suspect]
     Active Substance: ROZANOLIXIZUMAB
     Dosage: 560MG (4ML), ONCE WEEKLY FOR SIX WEEKS (2ND CYCLE)
     Route: 058
     Dates: start: 20240829

REACTIONS (9)
  - Myasthenia gravis [Recovered/Resolved]
  - Headache [Recovered/Resolved]
  - Constipation [Not Recovered/Not Resolved]
  - Nausea [Not Recovered/Not Resolved]
  - Pyrexia [Recovered/Resolved]
  - Malaise [Recovered/Resolved]
  - Dysphagia [Recovering/Resolving]
  - Therapeutic product effect incomplete [Unknown]
  - Therapy interrupted [Unknown]

NARRATIVE: CASE EVENT DATE: 20240101
